FAERS Safety Report 4427998-X (Version None)
Quarter: 2004Q3

REPORT INFORMATION
  Report Type: 
  Country: None (occurrence: None)
  Receive Date: 20040726
  Receipt Date: 20040510
  Transmission Date: 20050211
  Serious: No
  Sender: FDA-Public Use
  Company Number: USA030740923

PATIENT
  Age: 53 Year
  Sex: Female
  Weight: 57 kg

DRUGS (5)
  1. FORTEO [Suspect]
     Indication: OSTEOPOROSIS
     Dosage: 20 UG/DAY
     Dates: start: 20030501
  2. CALCIUM WITH VITAMIN D [Concomitant]
  3. MULTIVIAMIN [Concomitant]
  4. GLUCOSAMINE CHONDROITIN [Concomitant]
  5. FOSAMAX [Concomitant]

REACTIONS (3)
  - ARTHRALGIA [None]
  - EMOTIONAL DISTRESS [None]
  - INJECTION SITE HAEMORRHAGE [None]
